FAERS Safety Report 7602693-4 (Version None)
Quarter: 2011Q3

REPORT INFORMATION
  Report Type: 
  Country: None (occurrence: None)
  Receive Date: 20110712
  Receipt Date: 20110628
  Transmission Date: 20111222
  Serious: Yes (Hospitalization)
  Sender: FDA-Public Use
  Company Number: JP-AMGEN-JPNCT2011027718

PATIENT
  Age: 76 Year
  Sex: Female
  Weight: 53 kg

DRUGS (12)
  1. CELECOXIB [Concomitant]
     Indication: CARPAL TUNNEL SYNDROME
     Dosage: 100 MG, PRN
     Route: 048
     Dates: start: 20101104
  2. NEUROTROPIN [Concomitant]
     Indication: BACK PAIN
     Dosage: 12 IU, UNK
     Route: 048
     Dates: start: 20090116
  3. LOXONIN [Concomitant]
     Indication: HEADACHE
     Dosage: 0.6 G, PRN
     Route: 048
     Dates: start: 20090514
  4. SELBEX [Concomitant]
     Indication: GASTRITIS PROPHYLAXIS
     Dosage: 0.5 G, UNK
     Route: 048
     Dates: start: 20090514
  5. BLINDED DENOSUMAB [Suspect]
     Indication: OSTEOPOROSIS
     Dosage: UNK UNK, Q6MO
     Route: 058
     Dates: start: 20090212
  6. CALCICHEW D3 [Concomitant]
     Dosage: 2 DF, QD
     Route: 048
     Dates: start: 20090123
  7. METHYCOOL [Concomitant]
     Indication: CARPAL TUNNEL SYNDROME
     Dosage: 500 A?G, UNK
     Route: 048
     Dates: start: 20100521
  8. CAFFEINE CITRATE [Concomitant]
     Indication: HEADACHE
     Dosage: 0.03 G, UNK
     Route: 048
     Dates: start: 20090514
  9. PLACEBO [Suspect]
     Indication: OSTEOPOROSIS
     Dosage: UNK UNK, Q6MO
     Route: 058
     Dates: start: 20090212
  10. HIRUDOID [Concomitant]
     Dosage: UNK UNK, PRN
     Route: 062
     Dates: start: 20100709
  11. BALANCE [Concomitant]
     Indication: HEADACHE
     Dosage: 0.05 G, UNK
     Route: 048
     Dates: start: 20090514
  12. ROBAXIN [Concomitant]
     Indication: HEADACHE
     Dosage: 0.25 G, UNK
     Route: 048
     Dates: start: 20090514

REACTIONS (2)
  - INTRACRANIAL ANEURYSM [None]
  - CONDITION AGGRAVATED [None]
